FAERS Safety Report 18543407 (Version 2)
Quarter: 2021Q1

REPORT INFORMATION
  Report Type: Spontaneous
  Country: BG (occurrence: BG)
  Receive Date: 20201124
  Receipt Date: 20210220
  Transmission Date: 20210419
  Serious: Yes (Death, Other)
  Sender: FDA-Public Use
  Company Number: BG-TAKEDA-BG202028639

PATIENT
  Age: 19 Year
  Sex: Male

DRUGS (56)
  1. VITAMIN C [Suspect]
     Active Substance: ASCORBIC ACID
     Dosage: 10 5 5 ML 2X4 AMP
     Route: 065
  2. CHLOPHAZOLIN [Suspect]
     Active Substance: CLONIDINE HYDROCHLORIDE
     Indication: PRODUCT USED FOR UNKNOWN INDICATION
     Dosage: UNK
     Route: 065
  3. ENTEROL [SACCHAROMYCES BOULARDII] [Suspect]
     Active Substance: SACCHAROMYCES CEREVISIAE
     Dosage: 250 MG * 10 ? 2X2 CAPS
     Route: 065
  4. ROACTEMRA [Suspect]
     Active Substance: TOCILIZUMAB
     Dosage: 400 MG/20 ML
     Route: 065
     Dates: start: 2020
  5. VANCOCIN [Suspect]
     Active Substance: VANCOMYCIN HYDROCHLORIDE
     Indication: PRODUCT USED FOR UNKNOWN INDICATION
     Dosage: 2X1.0
     Route: 065
  6. AZITROX [Suspect]
     Active Substance: AZITHROMYCIN
     Route: 065
  7. SINEQUAN [Suspect]
     Active Substance: DOXEPIN HYDROCHLORIDE
     Dosage: X 2 CAPS
     Route: 065
  8. METHYLPREDNISOLONE. [Suspect]
     Active Substance: METHYLPREDNISOLONE
     Indication: PRODUCT USED FOR UNKNOWN INDICATION
     Route: 065
  9. CARSIL [Suspect]
     Active Substance: DIETARY SUPPLEMENT\HERBALS\MILK THISTLE
     Indication: PRODUCT USED FOR UNKNOWN INDICATION
     Dosage: UNK
     Route: 065
  10. CARSIL [Suspect]
     Active Substance: DIETARY SUPPLEMENT\HERBALS\MILK THISTLE
     Dosage: 90 MG * 30 PCS. ? ACCORDING TO THE SCHEME
     Route: 065
  11. MEROPEN [MEROPENEM] [Suspect]
     Active Substance: MEROPENEM
     Indication: PRODUCT USED FOR UNKNOWN INDICATION
     Dosage: 3X1.0
     Route: 065
  12. SOMAZINA [Suspect]
     Active Substance: CITICOLINE
     Indication: PRODUCT USED FOR UNKNOWN INDICATION
     Dosage: UNK
     Route: 065
  13. SODIUM CHLORIDE. [Suspect]
     Active Substance: SODIUM CHLORIDE
     Indication: PRODUCT USED FOR UNKNOWN INDICATION
     Dosage: 100 ML ECO?BOTTLE BY PRESCRIPTION
     Route: 065
  14. BROMHEXINE [Suspect]
     Active Substance: BROMHEXINE
     Indication: PRODUCT USED FOR UNKNOWN INDICATION
     Route: 065
  15. CALCIUM GLUCONATE. [Suspect]
     Active Substance: CALCIUM GLUCONATE
     Indication: PRODUCT USED FOR UNKNOWN INDICATION
     Dosage: UNK
     Route: 065
  16. CHLOROQUINE PHOSPHATE. [Suspect]
     Active Substance: CHLOROQUINE PHOSPHATE
     Indication: PRODUCT USED FOR UNKNOWN INDICATION
     Dosage: 2X1 TABLETS
     Route: 065
  17. ROACTEMRA [Suspect]
     Active Substance: TOCILIZUMAB
     Indication: COVID-19 PNEUMONIA
     Dosage: 200 MG/20ML
     Route: 065
     Dates: start: 20200101
  18. DIFLAZON [Suspect]
     Active Substance: FLUCONAZOLE
     Indication: PRODUCT USED FOR UNKNOWN INDICATION
     Dosage: UNK
     Route: 065
  19. QUAMATEL [Suspect]
     Active Substance: FAMOTIDINE
     Indication: PRODUCT USED FOR UNKNOWN INDICATION
     Dosage: 2X1 VIAL
     Route: 065
  20. SINEQUAN [Suspect]
     Active Substance: DOXEPIN HYDROCHLORIDE
     Indication: PRODUCT USED FOR UNKNOWN INDICATION
     Dosage: UNK
     Route: 065
  21. FUROSEMIDE. [Suspect]
     Active Substance: FUROSEMIDE
     Indication: PRODUCT USED FOR UNKNOWN INDICATION
     Dosage: UNK
     Route: 065
  22. FUROSEMIDE. [Suspect]
     Active Substance: FUROSEMIDE
     Dosage: 10 MG/ML ? AS PRESCRIBED
     Route: 065
  23. FLEXIDOL RELAX [Suspect]
     Active Substance: MELOXICAM\PRIDINOL MESILATE
     Indication: PRODUCT USED FOR UNKNOWN INDICATION
     Dosage: 5 MG/ML
     Route: 065
  24. CALCIUM GLUCONATE. [Suspect]
     Active Substance: CALCIUM GLUCONATE
     Dosage: 8.94 MG/ML ? 10 ML ? 2X1 AMP
     Route: 065
  25. ALBUNORM [Suspect]
     Active Substance: ALBUMIN HUMAN
     Indication: PRODUCT USED FOR UNKNOWN INDICATION
     Route: 065
  26. DEXAMETHASONE. [Suspect]
     Active Substance: DEXAMETHASONE
     Indication: PRODUCT USED FOR UNKNOWN INDICATION
     Route: 065
  27. METHYLPREDNISOLONE. [Suspect]
     Active Substance: METHYLPREDNISOLONE
     Dosage: 40 MG / 2 ML
     Route: 065
  28. PARACETAMOL [Suspect]
     Active Substance: ACETAMINOPHEN
     Indication: PRODUCT USED FOR UNKNOWN INDICATION
     Dosage: 10 MG/ML
     Route: 065
  29. MEROPENEM. [Suspect]
     Active Substance: MEROPENEM
     Indication: PRODUCT USED FOR UNKNOWN INDICATION
     Dosage: 3X1.0
     Route: 065
  30. SUMAMED [Suspect]
     Active Substance: AZITHROMYCIN ANHYDROUS
     Indication: PRODUCT USED FOR UNKNOWN INDICATION
     Route: 065
  31. CHLOPHAZOLIN [Suspect]
     Active Substance: CLONIDINE HYDROCHLORIDE
     Dosage: 0.15 MG/ML ? AS PRESCRIBED
     Route: 065
  32. STEROFUNDIN [Suspect]
     Active Substance: CALCIUM CHLORIDE\MAGNESIUM CHLORIDE\POTASSIUM CHLORIDE\SODIUM ACETATE\SODIUM CHLORIDE
     Dosage: 500 L ? ECO?VIAL ? X500 ML
     Route: 065
  33. METHYLPREDNISOLONE. [Suspect]
     Active Substance: METHYLPREDNISOLONE
     Dosage: 40 MG / 2 ML
     Route: 065
  34. SERUM GLUCOSE [Suspect]
     Active Substance: DEXTROSE
     Indication: PRODUCT USED FOR UNKNOWN INDICATION
     Dosage: BY PRESCRIPTION
     Route: 042
  35. DIFLAZON [Suspect]
     Active Substance: FLUCONAZOLE
     Dosage: 2 MG/1 ML ? 100 ML ? X 2 VIAL
     Route: 065
  36. BROMHEXINE [Suspect]
     Active Substance: BROMHEXINE
     Dosage: 4 MG 2 ML
     Route: 065
  37. BROMHEXINE [Suspect]
     Active Substance: BROMHEXINE
     Dosage: 4 MG 2 ML ? AS PRESCRIBED
     Route: 065
  38. FRAXIPARINE [Suspect]
     Active Substance: NADROPARIN CALCIUM
     Indication: PRODUCT USED FOR UNKNOWN INDICATION
     Dosage: 1 VIAL MG/ML AS PRESCRIBED
     Route: 065
  39. DEXAMETHASONE. [Suspect]
     Active Substance: DEXAMETHASONE
     Dosage: 4 MG/1 ML ? 2X2 AMP
     Route: 065
  40. DEGAN [Suspect]
     Active Substance: METOCLOPRAMIDE HYDROCHLORIDE
     Dosage: 10 MG ? 2 ML ? AS PRESCRIBED
     Route: 065
  41. CLEXANE [Suspect]
     Active Substance: ENOXAPARIN SODIUM
     Dosage: 60 MG/0.60 ML ? X1VIAL
     Route: 065
  42. SOMAZINA [Suspect]
     Active Substance: CITICOLINE
     Dosage: 1000 MG 4 ML 2X1 AMP
     Route: 065
  43. VITAMIN C [Suspect]
     Active Substance: ASCORBIC ACID
     Indication: PRODUCT USED FOR UNKNOWN INDICATION
     Route: 065
  44. VITAMIN C [Suspect]
     Active Substance: ASCORBIC ACID
     Dosage: 10 5 5 ML
     Route: 065
  45. NUTRIFLEX OMEGA PLUS [Suspect]
     Active Substance: AMINO ACIDS\DEXTROSE\ELECTROLYTES NOS\SOYBEAN OIL
     Indication: PRODUCT USED FOR UNKNOWN INDICATION
     Dosage: UNK
     Route: 065
  46. ESOMEPRAZOLE. [Suspect]
     Active Substance: ESOMEPRAZOLE MAGNESIUM
     Indication: PRODUCT USED FOR UNKNOWN INDICATION
     Dosage: 2X1 VIAL
     Route: 065
  47. AZITROX [Suspect]
     Active Substance: AZITHROMYCIN
     Indication: PRODUCT USED FOR UNKNOWN INDICATION
     Route: 065
  48. METAMIZOLE [Suspect]
     Active Substance: METAMIZOLE
     Indication: PRODUCT USED FOR UNKNOWN INDICATION
     Dosage: X 2 CAPSAMP. 500MG/ML 2 ML
     Route: 065
  49. CLEXANE [Suspect]
     Active Substance: ENOXAPARIN SODIUM
     Dosage: 60 MG/0.60 ML
     Route: 065
  50. SOMAZINA [Suspect]
     Active Substance: CITICOLINE
     Dosage: 1000 MG 4 ML
     Route: 065
  51. NUTRIFLEX OMEGA PLUS [Suspect]
     Active Substance: AMINO ACIDS\DEXTROSE\ELECTROLYTES NOS\SOYBEAN OIL
     Dosage: 875 ML ? 2 PCS
     Route: 065
  52. DEGAN [Suspect]
     Active Substance: METOCLOPRAMIDE HYDROCHLORIDE
     Indication: PRODUCT USED FOR UNKNOWN INDICATION
     Route: 065
  53. DEGAN [Suspect]
     Active Substance: METOCLOPRAMIDE HYDROCHLORIDE
     Dosage: 10 MG ? 2 ML
     Route: 065
  54. ENTEROL [SACCHAROMYCES BOULARDII] [Suspect]
     Active Substance: SACCHAROMYCES CEREVISIAE
     Indication: PRODUCT USED FOR UNKNOWN INDICATION
     Route: 065
  55. STEROFUNDIN [Suspect]
     Active Substance: CALCIUM CHLORIDE\MAGNESIUM CHLORIDE\POTASSIUM CHLORIDE\SODIUM ACETATE\SODIUM CHLORIDE
     Indication: PRODUCT USED FOR UNKNOWN INDICATION
     Dosage: 500 L ? ECO?VIAL ? X 500 ML
     Route: 065
  56. CLEXANE [Suspect]
     Active Substance: ENOXAPARIN SODIUM
     Indication: PRODUCT USED FOR UNKNOWN INDICATION
     Route: 065

REACTIONS (14)
  - COVID-19 pneumonia [Fatal]
  - Hypertension [Fatal]
  - Acute respiratory failure [Fatal]
  - Confusional state [Fatal]
  - Hallucination [Fatal]
  - Off label use [Unknown]
  - Brain oedema [Fatal]
  - Embolism [Fatal]
  - Tachypnoea [Fatal]
  - Intentional product use issue [Unknown]
  - Pulmonary oedema [Fatal]
  - Encephalopathy [Fatal]
  - Cardiovascular insufficiency [Fatal]
  - Hypoxia [Fatal]

NARRATIVE: CASE EVENT DATE: 20200731
